FAERS Safety Report 7213132-X (Version None)
Quarter: 2011Q1

REPORT INFORMATION
  Report Type: 
  Country: None (occurrence: None)
  Receive Date: 20110106
  Receipt Date: 20110103
  Transmission Date: 20110831
  Serious: Yes (Hospitalization)
  Sender: FDA-Public Use
  Company Number: -VALEANT-2010VX002188

PATIENT
  Age: 68 Year
  Sex: Male
  Weight: 98 kg

DRUGS (1)
  1. EFUDIX [Suspect]
     Indication: ACTINIC KERATOSIS
     Route: 061
     Dates: start: 20101203, end: 20101215

REACTIONS (4)
  - ILEUS [None]
  - DIVERTICULITIS [None]
  - STREPTOCOCCUS TEST POSITIVE [None]
  - LARGE INTESTINE PERFORATION [None]
